FAERS Safety Report 19477784 (Version 1)
Quarter: 2021Q2

REPORT INFORMATION
  Report Type: Spontaneous
  Country: US (occurrence: US)
  Receive Date: 20210630
  Receipt Date: 20210630
  Transmission Date: 20210717
  Serious: No
  Sender: FDA-Public Use
  Company Number: US-KRAMERLABS-2021-US-004787

PATIENT
  Age: 13 Year
  Sex: Male

DRUGS (1)
  1. NIZORAL A?D [Suspect]
     Active Substance: KETOCONAZOLE
     Indication: DANDRUFF
     Dosage: 3?4 TIMES A WEEK
     Route: 061
     Dates: start: 20201226

REACTIONS (5)
  - Intentional product misuse [Unknown]
  - Drug ineffective [Unknown]
  - Condition aggravated [Unknown]
  - Inappropriate schedule of product administration [Unknown]
  - Dandruff [Unknown]

NARRATIVE: CASE EVENT DATE: 20201226
